FAERS Safety Report 4423326-4 (Version None)
Quarter: 2004Q3

REPORT INFORMATION
  Report Type: 
  Country: None (occurrence: None)
  Receive Date: 20040811
  Receipt Date: 20030221
  Transmission Date: 20050211
  Serious: Yes (Other)
  Sender: FDA-Public Use
  Company Number: GB-BRISTOL-MYERS SQUIBB COMPANY-12192621

PATIENT
  Age: 58 Year
  Sex: Female
  Weight: 57 kg

DRUGS (7)
  1. DUTONIN TABS 100 MG [Suspect]
     Indication: DEPRESSION
     Route: 048
     Dates: start: 20011004, end: 20021111
  2. TRAMADOL HCL [Concomitant]
     Indication: PAIN
     Route: 048
     Dates: start: 20021001, end: 20021101
  3. TEMAZEPAM [Concomitant]
     Indication: SLEEP DISORDER
     Route: 048
     Dates: start: 19990101
  4. TOLBUTAMIDE [Concomitant]
     Indication: DIABETES MELLITUS
     Route: 048
     Dates: start: 20021017
  5. MONTELUKAST [Concomitant]
     Indication: ASTHMA
     Route: 048
     Dates: start: 20010101
  6. ENALAPRIL MALEATE [Concomitant]
     Indication: BLOOD PRESSURE ABNORMAL
     Route: 048
     Dates: start: 20000101
  7. FRUSEMIDE [Concomitant]
     Indication: BLOOD PRESSURE INCREASED
     Route: 048
     Dates: start: 20010101

REACTIONS (7)
  - ABNORMAL BEHAVIOUR [None]
  - ARTHROPATHY [None]
  - CONFUSIONAL STATE [None]
  - COORDINATION ABNORMAL [None]
  - FATIGUE [None]
  - FEELING ABNORMAL [None]
  - MONOPLEGIA [None]
